FAERS Safety Report 17396713 (Version 2)
Quarter: 2020Q2

REPORT INFORMATION
  Report Type: Report from Study
  Country: JP (occurrence: JP)
  Receive Date: 20200210
  Receipt Date: 20200416
  Transmission Date: 20200713
  Serious: Yes (Hospitalization)
  Sender: FDA-Public Use
  Company Number: JP-TEVA-2020-JP-1184050

PATIENT
  Age: 76 Year
  Sex: Female
  Weight: 39 kg

DRUGS (9)
  1. RIVASTIGMINE. [Concomitant]
     Active Substance: RIVASTIGMINE
  2. RASAGILINE MESYLATE  TABLET [Suspect]
     Active Substance: RASAGILINE MESYLATE
     Indication: PARKINSON^S DISEASE
     Dosage: .5 MILLIGRAM DAILY; FINAL DOSING 19-FEB-2019
     Route: 065
     Dates: start: 20190207, end: 20190227
  3. RASAGILINE MESYLATE  TABLET [Suspect]
     Active Substance: RASAGILINE MESYLATE
     Dosage: 1 MILLIGRAM DAILY; 3 MONTHS 23 DAYS
     Route: 065
     Dates: start: 20190228, end: 20190619
  4. LEVODOPA [Concomitant]
     Active Substance: LEVODOPA
     Route: 065
  5. ISTRADEFYLLINE [Concomitant]
     Active Substance: ISTRADEFYLLINE
  6. ENTACAPONE. [Concomitant]
     Active Substance: ENTACAPONE
     Route: 065
  7. RIVOTRIL [Concomitant]
     Active Substance: CLONAZEPAM
  8. YOKUKANSAN [Concomitant]
     Active Substance: HERBALS
     Route: 065
  9. RAMELTEON [Concomitant]
     Active Substance: RAMELTEON

REACTIONS (1)
  - Decreased appetite [Recovering/Resolving]

NARRATIVE: CASE EVENT DATE: 20190523
